FAERS Safety Report 8429822 (Version 4)
Quarter: 2015Q1

REPORT INFORMATION
  Report Type: Spontaneous
  Country: US (occurrence: None)
  Receive Date: 20120215
  Receipt Date: 20150211
  Transmission Date: 20150721
  Serious: Yes (Other)
  Sender: FDA-Public Use
  Company Number: 1201-012

PATIENT
  Age: 85 Year
  Sex: Female

DRUGS (4)
  1. EYLEA [Suspect]
     Active Substance: AFLIBERCEPT
     Indication: AGE-RELATED MACULAR DEGENERATION
     Dosage: 2 MG, 1 IN 1 M, INTRAVITREAL
     Route: 031
     Dates: start: 20120113, end: 20120113
  2. PRESERVISION (ASCORBIC ACID, BETACAROTENE, CUPRIC OXIDE, TOCOPHERYL ACETATE, ZINC OXIDE)?? [Concomitant]
  3. LIDOCAINE /00033402/ (LIDOCAINE HYDROCHLORIDE) [Concomitant]
  4. ARTIFICIAL TEARS /00445101/ (HYPROMELLOSE) [Concomitant]

REACTIONS (11)
  - Anterior chamber flare [None]
  - Corneal oedema [None]
  - Vitreous detachment [None]
  - Eye pain [None]
  - Facial pain [None]
  - Hypopyon [None]
  - Endophthalmitis [None]
  - Vision blurred [None]
  - Vitritis [None]
  - Hypersensitivity [None]
  - Pruritus [None]

NARRATIVE: CASE EVENT DATE: 20120104
